FAERS Safety Report 12949683 (Version 1)
Quarter: 2016Q4

REPORT INFORMATION
  Report Type: Spontaneous
  Country: US (occurrence: US)
  Receive Date: 20161116
  Receipt Date: 20161116
  Transmission Date: 20170207
  Serious: No
  Sender: FDA-Public Use
  Company Number: None

PATIENT
  Age: 26 Year
  Sex: Female
  Weight: 63 kg

DRUGS (2)
  1. ONE-A-DAY WOMEN^S VITAMIN [Concomitant]
  2. TRI-LO-SPRINTEC [Suspect]
     Active Substance: ETHINYL ESTRADIOL\NORGESTIMATE
     Indication: CONTRACEPTION
     Dosage: ?          QUANTITY:84 TABLET(S);?
     Route: 048
     Dates: start: 20161016, end: 20161115

REACTIONS (5)
  - Product substitution issue [None]
  - Metrorrhagia [None]
  - Acne [None]
  - Headache [None]
  - Pruritus generalised [None]

NARRATIVE: CASE EVENT DATE: 20161115
